FAERS Safety Report 5948960-1 (Version None)
Quarter: 2008Q4

REPORT INFORMATION
  Report Type: 
  Country: None (occurrence: None)
  Receive Date: 20081111
  Receipt Date: 20081106
  Transmission Date: 20090506
  Serious: Yes (Other)
  Sender: FDA-Public Use
  Company Number: GB-WYE-G02521808

PATIENT
  Age: 52 Year
  Sex: Female
  Weight: 48 kg

DRUGS (5)
  1. VENLAFAXINE HYDROCHLORIDE [Suspect]
     Indication: ANXIETY
     Dosage: 150MG FREQUENCY UNKNOWN
     Route: 048
     Dates: start: 20080728, end: 20081015
  2. VENLAFAXINE HYDROCHLORIDE [Suspect]
     Indication: DEPRESSION
  3. LANSOPRAZOLE [Concomitant]
     Indication: PEPTIC ULCER
     Route: 048
  4. PROPRANOLOL [Concomitant]
     Indication: ANXIETY
     Route: 048
  5. BETAHISTINE [Concomitant]
     Indication: DIZZINESS
     Route: 048

REACTIONS (3)
  - ALOPECIA [None]
  - RASH [None]
  - STRESS [None]
